FAERS Safety Report 9689032 (Version 1)
Quarter: 2013Q4

REPORT INFORMATION
  Report Type: Spontaneous
  Country: NL (occurrence: NL)
  Receive Date: 20131114
  Receipt Date: 20131114
  Transmission Date: 20140711
  Serious: Yes (Other)
  Sender: FDA-Public Use
  Company Number: NL-PFIZER INC-2013323143

PATIENT
  Age: 52 Year
  Sex: Female
  Weight: 64 kg

DRUGS (3)
  1. AMLODIPINE BESILATE [Suspect]
     Indication: HYPERTENSION
     Dosage: 5 MG, 1X/DAY
     Dates: start: 20131001, end: 20131028
  2. LORAZEPAM [Concomitant]
     Dosage: 2 MG, 1X/DAY
     Dates: start: 20120209
  3. IRBESARTAN [Concomitant]
     Dosage: 150 MG, 1X/DAY
     Dates: start: 20130303

REACTIONS (1)
  - Suicidal ideation [Recovered/Resolved]
